FAERS Safety Report 6006368-7 (Version None)
Quarter: 2008Q4

REPORT INFORMATION
  Report Type: 
  Country: None (occurrence: None)
  Receive Date: 20081216
  Receipt Date: 20081216
  Transmission Date: 20090506
  Serious: Yes (Hospitalization)
  Sender: FDA-Public Use
  Company Number: None

PATIENT
  Age: 54 Year
  Sex: Female
  Weight: 51.2565 kg

DRUGS (15)
  1. ABRAXANE [Suspect]
     Dosage: 152MG Q WK (3 TR) IV
     Route: 042
     Dates: start: 20081125
  2. ABRAXANE [Suspect]
     Dosage: 152MG Q WK (3 TR) IV
     Route: 042
     Dates: start: 20081202
  3. ABRAXANE [Suspect]
     Dosage: 152MG Q WK (3 TR) IV
     Route: 042
     Dates: start: 20081209
  4. CARBOPLATIN [Suspect]
     Dosage: 712.5 MG Q 4 WKS (1 TR) IV
     Route: 042
     Dates: end: 20081125
  5. NEXAVAR [Suspect]
     Dosage: 800MG Q DAILY PO
     Route: 048
     Dates: start: 20081126, end: 20081203
  6. LISINOPRIL [Concomitant]
  7. REGLAN [Concomitant]
  8. METHADON HCL TAB [Concomitant]
  9. AMBIEN [Concomitant]
  10. SENOKOT [Concomitant]
  11. IRON [Concomitant]
  12. COLACE [Concomitant]
  13. OMEPRAZOLE [Concomitant]
  14. MEGACE [Concomitant]
  15. MACRODAN... [Concomitant]

REACTIONS (1)
  - GASTROINTESTINAL HAEMORRHAGE [None]
